FAERS Safety Report 11544957 (Version 2)
Quarter: 2015Q4

REPORT INFORMATION
  Report Type: Spontaneous
  Country: US (occurrence: US)
  Receive Date: 20150924
  Receipt Date: 20151014
  Transmission Date: 20160304
  Serious: Yes (Life-Threatening)
  Sender: FDA-Public Use
  Company Number: US-009507513-1509USA007620

PATIENT
  Sex: Female

DRUGS (2)
  1. GANIRELIX ACETATE INJECTION [Suspect]
     Active Substance: GANIRELIX ACETATE
     Indication: INFERTILITY FEMALE
     Dosage: 1 PREFILLED SYRINGE/ONCE A DAY
  2. GANIRELIX ACETATE INJECTION [Suspect]
     Active Substance: GANIRELIX ACETATE
     Dosage: 1 PREFILLED SYRINGE/ONCE A DAY

REACTIONS (3)
  - Injection site pruritus [Recovered/Resolved]
  - Pharyngeal oedema [Recovered/Resolved]
  - Injection site swelling [Recovered/Resolved]
